FAERS Safety Report 11809085 (Version 3)
Quarter: 2016Q2

REPORT INFORMATION
  Report Type: Report from Study
  Country: FR (occurrence: FR)
  Receive Date: 20151207
  Receipt Date: 20160520
  Transmission Date: 20160815
  Serious: Yes (Other)
  Sender: FDA-Public Use
  Company Number: FR-ROCHE-1669788

PATIENT
  Age: 44 Year
  Sex: Male
  Weight: 123 kg

DRUGS (2)
  1. COBIMETINIB [Suspect]
     Active Substance: COBIMETINIB
     Indication: MALIGNANT MELANOMA
     Dosage: 2 TABTETS
     Route: 048
     Dates: start: 20150902
  2. VEMURAFENIB [Suspect]
     Active Substance: VEMURAFENIB
     Indication: MALIGNANT MELANOMA
     Route: 048
     Dates: start: 20150821

REACTIONS (1)
  - Bundle branch block right [Recovering/Resolving]

NARRATIVE: CASE EVENT DATE: 20151126
